FAERS Safety Report 7676887-6 (Version None)
Quarter: 2011Q3

REPORT INFORMATION
  Report Type: 
  Country: None (occurrence: None)
  Receive Date: 20110811
  Receipt Date: 20110808
  Transmission Date: 20111222
  Serious: Yes (Death, Hospitalization)
  Sender: FDA-Public Use
  Company Number: PHHY2011CA43904

PATIENT
  Sex: Male

DRUGS (1)
  1. SANDOSTATIN LAR [Suspect]
     Indication: PANCREATIC CARCINOMA
     Dosage: 10 MG, EVERY 4 WEEKS
     Route: 030
     Dates: start: 20110515

REACTIONS (4)
  - DIARRHOEA [None]
  - CHOLELITHIASIS [None]
  - DEATH [None]
  - YELLOW SKIN [None]
